FAERS Safety Report 7042708-8 (Version None)
Quarter: 2010Q4

REPORT INFORMATION
  Report Type: 
  Country: None (occurrence: None)
  Receive Date: 20101013
  Receipt Date: 20100701
  Transmission Date: 20110411
  Serious: No
  Sender: FDA-Public Use
  Company Number: US-ASTRAZENECA-2010SE30998

PATIENT
  Sex: Female
  Weight: 55.8 kg

DRUGS (1)
  1. SYMBICORT [Suspect]
     Indication: ASTHMA
     Dosage: 640 MCGS TWO PUFFS IN AM AND TWO IN PM
     Route: 055
     Dates: start: 20100501

REACTIONS (4)
  - DYSPHONIA [None]
  - INCREASED APPETITE [None]
  - ORAL CANDIDIASIS [None]
  - PHARYNGEAL DISORDER [None]
